FAERS Safety Report 21187518 (Version 2)
Quarter: 2022Q3

REPORT INFORMATION
  Report Type: Spontaneous
  Country: US (occurrence: None)
  Receive Date: 20220808
  Receipt Date: 20220911
  Transmission Date: 20221027
  Serious: No
  Sender: FDA-Public Use
  Company Number: 2022A267437

PATIENT
  Sex: Male
  Weight: 107 kg

DRUGS (7)
  1. BUDESONIDE\FORMOTEROL\GLYCOPYRRONIUM [Suspect]
     Active Substance: BUDESONIDE\FORMOTEROL\GLYCOPYRRONIUM
     Indication: Chronic obstructive pulmonary disease
     Dosage: 160/7.2/5.0MCG
     Route: 055
  2. ALBUTEROL [Concomitant]
     Active Substance: ALBUTEROL
  3. FLUTICASONE [Concomitant]
     Active Substance: FLUTICASONE
  4. FLECAINIDE [Concomitant]
     Active Substance: FLECAINIDE
  5. METOPROLOL [Concomitant]
     Active Substance: METOPROLOL
  6. XARELTO [Concomitant]
     Active Substance: RIVAROXABAN
  7. MELOXICAM [Concomitant]
     Active Substance: MELOXICAM

REACTIONS (2)
  - Dyspnoea [Unknown]
  - Device malfunction [Unknown]
